FAERS Safety Report 5825709-4 (Version None)
Quarter: 2008Q3

REPORT INFORMATION
  Report Type: 
  Country: None (occurrence: None)
  Receive Date: 20080729
  Receipt Date: 20080306
  Transmission Date: 20090109
  Serious: Yes (Other)
  Sender: FDA-Public Use
  Company Number: US-BAYER-200820390GPV

PATIENT
  Age: 19 Month
  Sex: Male

DRUGS (3)
  1. FLUDARABINE [Suspect]
     Indication: ACUTE LEUKAEMIA
     Route: 065
  2. CYTARABINE [Suspect]
     Indication: ACUTE LEUKAEMIA
     Route: 065
  3. GRANULOCYTE COLONY-STIMULATING FACTOR (G-CSF) [Concomitant]
     Indication: ACUTE MEGAKARYOCYTIC LEUKAEMIA
     Route: 065

REACTIONS (4)
  - NEUTROPENIA [None]
  - PNEUMONIA BACTERIAL [None]
  - PNEUMONIA FUNGAL [None]
  - THROMBOCYTOPENIA [None]
